FAERS Safety Report 8837095 (Version 1)
Quarter: 2012Q4

REPORT INFORMATION
  Report Type: 
  Country: US (occurrence: US)
  Receive Date: 20121011
  Receipt Date: 20121011
  Transmission Date: 20130627
  Serious: Yes (Other)
  Sender: FDA-Public Use
  Company Number: US-ROCHE-GNE268176

PATIENT
  Sex: Male

DRUGS (1)
  1. RAPTIVA [Suspect]
     Indication: PSORIASIS
     Dosage: 0.7 mL, UNK
     Route: 058
     Dates: start: 20080620

REACTIONS (5)
  - Psoriasis [Recovering/Resolving]
  - Headache [Unknown]
  - Skin fissures [Unknown]
  - Skin fissures [Unknown]
  - Condition aggravated [Unknown]
